FAERS Safety Report 20200613 (Version 2)
Quarter: 2021Q4

REPORT INFORMATION
  Report Type: Report from Study
  Country: KR (occurrence: KR)
  Receive Date: 20211217
  Receipt Date: 20211227
  Transmission Date: 20220303
  Serious: No
  Sender: FDA-Public Use
  Company Number: KR-AstraZeneca-2021-29360

PATIENT
  Age: 74 Year
  Sex: Male

DRUGS (40)
  1. TRASTUZUMAB DERUXTECAN [Suspect]
     Active Substance: TRASTUZUMAB DERUXTECAN
     Indication: HER2 positive gastric cancer
     Dosage: 6.4 MG/KG, ONCE EVERY 3 WK
     Route: 042
     Dates: start: 20210506, end: 20210506
  2. TRASTUZUMAB DERUXTECAN [Suspect]
     Active Substance: TRASTUZUMAB DERUXTECAN
     Dosage: 5.4 MG/KG, ONCE EVERY 3 WK
     Route: 042
     Dates: start: 20210609, end: 20210609
  3. TRASTUZUMAB DERUXTECAN [Suspect]
     Active Substance: TRASTUZUMAB DERUXTECAN
     Dosage: 4.4 MG/KG, ONCE EVERY 3 WK
     Route: 042
     Dates: start: 20210714, end: 20210714
  4. TRASTUZUMAB DERUXTECAN [Suspect]
     Active Substance: TRASTUZUMAB DERUXTECAN
     Dosage: 4.4 MG/KG, ONCE EVERY 3 WK
     Route: 042
     Dates: start: 20210804, end: 20210804
  5. TRASTUZUMAB DERUXTECAN [Suspect]
     Active Substance: TRASTUZUMAB DERUXTECAN
     Dosage: 4.4 MG/KG, ONCE EVERY 3 WK
     Route: 042
     Dates: start: 20210825, end: 20210825
  6. TRASTUZUMAB DERUXTECAN [Suspect]
     Active Substance: TRASTUZUMAB DERUXTECAN
     Dosage: 4.4 MG/KG, ONCE EVERY 3 WK
     Route: 042
     Dates: start: 20210915, end: 20210915
  7. TRASTUZUMAB DERUXTECAN [Suspect]
     Active Substance: TRASTUZUMAB DERUXTECAN
     Dosage: 4.4 MG/KG, ONCE EVERY 3 WK
     Route: 042
     Dates: start: 20211006, end: 20211006
  8. TRASTUZUMAB DERUXTECAN [Suspect]
     Active Substance: TRASTUZUMAB DERUXTECAN
     Dosage: 4.4 MG/KG, ONCE EVERY 3 WK
     Route: 042
     Dates: start: 20211027, end: 20211027
  9. TRASTUZUMAB DERUXTECAN [Suspect]
     Active Substance: TRASTUZUMAB DERUXTECAN
     Dosage: 4.4 MG/KG, ONCE EVERY 3 WK
     Route: 042
     Dates: start: 20211117, end: 20211117
  10. CAPECITABINE [Suspect]
     Active Substance: CAPECITABINE
     Indication: HER2 positive gastric cancer
     Dosage: 1000 MG/M2, ONCE EVERY 3 WK
     Route: 048
     Dates: start: 20210506, end: 20210506
  11. CAPECITABINE [Suspect]
     Active Substance: CAPECITABINE
     Dosage: 1000 MG/M2, ONCE EVERY 3 WK
     Route: 048
     Dates: start: 20210507, end: 20210518
  12. CAPECITABINE [Suspect]
     Active Substance: CAPECITABINE
     Dosage: 1000 MG/M2, ONCE EVERY 3 WK
     Route: 048
     Dates: start: 20210519, end: 20210519
  13. CAPECITABINE [Suspect]
     Active Substance: CAPECITABINE
     Dosage: 750 MG/M2, ONCE EVERY 3 WK
     Route: 048
     Dates: start: 20210609, end: 20210609
  14. CAPECITABINE [Suspect]
     Active Substance: CAPECITABINE
     Dosage: 750 MG/M2, ONCE EVERY 3 WK
     Route: 048
     Dates: start: 20210610, end: 20210620
  15. CAPECITABINE [Suspect]
     Active Substance: CAPECITABINE
     Dosage: 500 MG/M2, ONCE EVERY 3 WK
     Route: 048
     Dates: start: 20210714, end: 20210714
  16. CAPECITABINE [Suspect]
     Active Substance: CAPECITABINE
     Dosage: 500 MG/M2, ONCE EVERY 3 WK
     Route: 048
     Dates: start: 20210715, end: 20210727
  17. CAPECITABINE [Suspect]
     Active Substance: CAPECITABINE
     Dosage: 500 MG/M2, ONCE EVERY 3 WK
     Route: 048
     Dates: start: 20210728, end: 20210728
  18. CAPECITABINE [Suspect]
     Active Substance: CAPECITABINE
     Dosage: 500 MG/M2, ONCE EVERY 3 WK
     Route: 048
     Dates: start: 20210729, end: 20210729
  19. CAPECITABINE [Suspect]
     Active Substance: CAPECITABINE
     Dosage: 500 MG/M2, ONCE EVERY 3 WK
     Route: 048
     Dates: start: 20210804, end: 20210804
  20. CAPECITABINE [Suspect]
     Active Substance: CAPECITABINE
     Dosage: 500 MG/M2, ONCE EVERY 3 WK
     Route: 048
     Dates: start: 20210805, end: 20210817
  21. CAPECITABINE [Suspect]
     Active Substance: CAPECITABINE
     Dosage: 500 MG/M2, ONCE EVERY 3 WK
     Route: 048
     Dates: start: 20210818, end: 20210818
  22. CAPECITABINE [Suspect]
     Active Substance: CAPECITABINE
     Dosage: 500 MG/M2, ONCE EVERY 3 WK
     Route: 048
     Dates: start: 20210825, end: 20210825
  23. CAPECITABINE [Suspect]
     Active Substance: CAPECITABINE
     Dosage: 500 MG/M2, ONCE EVERY 3 WK
     Route: 048
     Dates: start: 20210826, end: 20210907
  24. CAPECITABINE [Suspect]
     Active Substance: CAPECITABINE
     Dosage: 500 MG/M2, ONCE EVERY 3 WK
     Route: 048
     Dates: start: 20210908, end: 20210908
  25. CAPECITABINE [Suspect]
     Active Substance: CAPECITABINE
     Dosage: 500 MG/M2, ONCE EVERY 3 WK
     Route: 048
     Dates: start: 20210915, end: 20210915
  26. CAPECITABINE [Suspect]
     Active Substance: CAPECITABINE
     Dosage: 500 MG/M2, ONCE EVERY 3 WK
     Route: 048
     Dates: start: 20210916, end: 20210928
  27. CAPECITABINE [Suspect]
     Active Substance: CAPECITABINE
     Dosage: 500 MG/M2, ONCE EVERY 3 WK
     Route: 048
     Dates: start: 20210929, end: 20210929
  28. CAPECITABINE [Suspect]
     Active Substance: CAPECITABINE
     Dosage: 500 MG/M2, ONCE EVERY 3 WK
     Route: 048
     Dates: start: 20211006, end: 20211006
  29. CAPECITABINE [Suspect]
     Active Substance: CAPECITABINE
     Dosage: 500 MG/M2, ONCE EVERY 3 WK
     Route: 048
     Dates: start: 20211007, end: 20211019
  30. CAPECITABINE [Suspect]
     Active Substance: CAPECITABINE
     Dosage: 500 MG/M2, ONCE EVERY 3 WK
     Route: 048
     Dates: start: 20211020, end: 20211020
  31. CAPECITABINE [Suspect]
     Active Substance: CAPECITABINE
     Dosage: 500 MG/M2, ONCE EVERY 3 WK
     Route: 048
     Dates: start: 20211027, end: 20211027
  32. CAPECITABINE [Suspect]
     Active Substance: CAPECITABINE
     Dosage: 500 MG/M2, ONCE EVERY 3 WK
     Route: 048
     Dates: start: 20211028, end: 20211109
  33. CAPECITABINE [Suspect]
     Active Substance: CAPECITABINE
     Dosage: 500 MG/M2, ONCE EVERY 3 WK
     Route: 048
     Dates: start: 20211110, end: 20211110
  34. OXALIPLATIN [Suspect]
     Active Substance: OXALIPLATIN
     Indication: HER2 positive gastric cancer
     Dosage: 100 MG/M2, ONCE EVERY 3 WK
     Route: 042
     Dates: start: 20210506, end: 20210506
  35. OXALIPLATIN [Suspect]
     Active Substance: OXALIPLATIN
     Dosage: 70 MG/M2, ONCE EVERY 3 WK
     Route: 042
     Dates: start: 20210609, end: 20210609
  36. OXALIPLATIN [Suspect]
     Active Substance: OXALIPLATIN
     Dosage: 50 MG/M2, ONCE EVERY 3 WK
     Route: 042
     Dates: start: 20210714, end: 20210714
  37. OXALIPLATIN [Suspect]
     Active Substance: OXALIPLATIN
     Dosage: 50 MG/M2, ONCE EVERY 3 WK
     Route: 042
     Dates: start: 20210804, end: 20210804
  38. OXALIPLATIN [Suspect]
     Active Substance: OXALIPLATIN
     Dosage: 50 MG/M2, ONCE EVERY 3 WK
     Route: 042
     Dates: start: 20210825, end: 20210825
  39. OXALIPLATIN [Suspect]
     Active Substance: OXALIPLATIN
     Dosage: 50 MG/M2, ONCE EVERY 3 WK
     Route: 042
     Dates: start: 20210915, end: 20210915
  40. FERINJECT [Concomitant]
     Active Substance: FERRIC CARBOXYMALTOSE
     Indication: Anaemia
     Route: 042
     Dates: start: 20211117, end: 20211117

REACTIONS (1)
  - Drug-induced liver injury [Not Recovered/Not Resolved]

NARRATIVE: CASE EVENT DATE: 20211208
